FAERS Safety Report 19224459 (Version 3)
Quarter: 2023Q2

REPORT INFORMATION
  Report Type: Spontaneous
  Country: US (occurrence: None)
  Receive Date: 20210505
  Receipt Date: 20230420
  Transmission Date: 20230721
  Serious: Yes (Hospitalization)
  Sender: FDA-Public Use
  Company Number: US-ROCHE-2619108

PATIENT
  Sex: Male

DRUGS (14)
  1. ESBRIET [Suspect]
     Active Substance: PIRFENIDONE
     Indication: Idiopathic pulmonary fibrosis
     Dosage: LATER DOSE REDUCED TO TWO A DAY, 3 TABLETS THRICE A DAY
     Route: 048
     Dates: start: 20200110
  2. ESBRIET [Suspect]
     Active Substance: PIRFENIDONE
     Dosage: TAKE 3 TABLETS BY MOUTH THREE TIMES A DAY WITH MEALS
     Route: 048
     Dates: start: 20200108
  3. ESBRIET [Suspect]
     Active Substance: PIRFENIDONE
     Dosage: 2 TABLETS BY MOUTH 3 TIMES A DAY WITH MEALS
     Route: 048
  4. ASPIRIN [Concomitant]
     Active Substance: ASPIRIN
  5. DULOXETINE HYDROCHLORIDE [Concomitant]
     Active Substance: DULOXETINE HYDROCHLORIDE
  6. FISH OIL [Concomitant]
     Active Substance: FISH OIL
  7. HYDROCHLOROTHIAZIDE [Concomitant]
     Active Substance: HYDROCHLOROTHIAZIDE
  8. LISINOPRIL [Concomitant]
     Active Substance: LISINOPRIL
  9. METOPROLOL SUCCINATE [Concomitant]
     Active Substance: METOPROLOL SUCCINATE
  10. NITROSTAT [Concomitant]
     Active Substance: NITROGLYCERIN
  11. PRIMIDONE [Concomitant]
     Active Substance: PRIMIDONE
  12. ATORVASTATIN CALCIUM [Concomitant]
     Active Substance: ATORVASTATIN CALCIUM
  13. OFEV [Concomitant]
     Active Substance: NINTEDANIB
  14. TYVASO [Concomitant]
     Active Substance: TREPROSTINIL

REACTIONS (5)
  - Abdominal discomfort [Not Recovered/Not Resolved]
  - Gastric disorder [Unknown]
  - Drug intolerance [Not Recovered/Not Resolved]
  - Gastric disorder [Not Recovered/Not Resolved]
  - Taste disorder [Not Recovered/Not Resolved]
